FAERS Safety Report 7357799-4 (Version None)
Quarter: 2011Q1

REPORT INFORMATION
  Report Type: 
  Country: None (occurrence: None)
  Receive Date: 20110309
  Receipt Date: 20100222
  Transmission Date: 20110831
  Serious: Yes (Death, Hospitalization)
  Sender: FDA-Public Use
  Company Number: FK201100334

PATIENT
  Age: 69 Year
  Sex: Male

DRUGS (4)
  1. CYCLOPHOSPHAMIDE [Suspect]
     Indication: DIFFUSE LARGE B-CELL LYMPHOMA
     Dosage: (750 MG/M2)
  2. PREDNISOLONE [Suspect]
     Indication: DIFFUSE LARGE B-CELL LYMPHOMA
  3. DOXORUBICIN (MANUFACTURER UNKNOWN) (DOXORUBICIN HYDROCHLORIDE) (DOXORU [Suspect]
     Indication: DIFFUSE LARGE B-CELL LYMPHOMA
     Dosage: (50 MG/M2)
  4. VINCRISTINE [Suspect]
     Indication: DIFFUSE LARGE B-CELL LYMPHOMA

REACTIONS (6)
  - CHRONIC MYELOMONOCYTIC LEUKAEMIA [None]
  - PNEUMONIA [None]
  - DIFFUSE LARGE B-CELL LYMPHOMA [None]
  - MONOCYTOSIS [None]
  - NEOPLASM MALIGNANT [None]
  - ANAEMIA MACROCYTIC [None]
